FAERS Safety Report 23636804 (Version 1)
Quarter: 2024Q1

REPORT INFORMATION
  Report Type: Spontaneous
  Country: US (occurrence: US)
  Receive Date: 20240315
  Receipt Date: 20240315
  Transmission Date: 20240409
  Serious: No
  Sender: FDA-Public Use
  Company Number: US-PFIZER INC-202400064845

PATIENT
  Age: 53 Year
  Sex: Female
  Weight: 66.22 kg

DRUGS (1)
  1. VARENICLINE TARTRATE [Suspect]
     Active Substance: VARENICLINE TARTRATE
     Indication: Smoking cessation therapy
     Dosage: 1MG TABLET; TWICE A DAY, 1 IN MORNING, 1 AT NIGHT

REACTIONS (1)
  - Nausea [Recovering/Resolving]
